FAERS Safety Report 6726111-3 (Version None)
Quarter: 2010Q2

REPORT INFORMATION
  Report Type: 
  Country: None (occurrence: None)
  Receive Date: 20100514
  Receipt Date: 20100504
  Transmission Date: 20101027
  Serious: Yes (Other)
  Sender: FDA-Public Use
  Company Number: SK-PFIZER INC-2010050918

PATIENT
  Age: 71 Year
  Sex: Male

DRUGS (25)
  1. ATORVASTATIN CALCIUM [Interacting]
     Indication: LEUKOCYTOSIS
     Dosage: 20 MG, UNK
     Dates: start: 20070212
  2. CYCLOSPORINE [Interacting]
     Dosage: UNK
     Dates: start: 20060301, end: 20070315
  3. CLARITHROMYCIN [Suspect]
     Dosage: UNK
     Dates: start: 20070308
  4. CIPROFLOXACIN [Interacting]
     Indication: CHRONIC OBSTRUCTIVE PULMONARY DISEASE
     Dosage: UNK
     Dates: start: 20070308
  5. CIPROFLOXACIN [Interacting]
     Indication: LEUKOCYTOSIS
  6. CIPROFLOXACIN [Interacting]
     Indication: PYREXIA
  7. KETOKONAZOL [Interacting]
     Indication: CHRONIC OBSTRUCTIVE PULMONARY DISEASE
     Dosage: UNK
     Dates: start: 20070301
  8. KETOKONAZOL [Interacting]
     Indication: LEUKOCYTOSIS
  9. KETOKONAZOL [Interacting]
     Indication: PYREXIA
  10. FLUCONAZOLE [Suspect]
     Indication: LEUKOCYTOSIS
     Dosage: UNK
     Dates: start: 20070315
  11. CEFUROXIME [Suspect]
     Indication: LEUKOCYTOSIS
     Dosage: UNK
     Dates: start: 20070308
  12. LEVOTHYROXINE SODIUM [Concomitant]
     Dosage: 100 MG, 1X/DAY
  13. VEROSPIRON [Concomitant]
     Dosage: 25 MG, 1X/DAY
  14. FUROSEMIDE [Concomitant]
     Dosage: 250 MG, IN THE MORNING
  15. HELICID [Concomitant]
  16. ROCALTROL [Concomitant]
  17. CONCOR COR [Concomitant]
  18. DIGOXIN [Concomitant]
  19. MILURIT [Concomitant]
  20. HUMULIN R [Concomitant]
  21. GUAJACURAN [Concomitant]
  22. MESOCAIN [Concomitant]
  23. DIPYRONE TAB [Concomitant]
  24. KATADOLON [Concomitant]
  25. PREDNISONE [Concomitant]

REACTIONS (2)
  - DRUG INTERACTION [None]
  - RENAL FAILURE ACUTE [None]
